FAERS Safety Report 11140545 (Version 1)
Quarter: 2015Q2

REPORT INFORMATION
  Report Type: Spontaneous
  Country: US (occurrence: US)
  Receive Date: 20150527
  Receipt Date: 20150527
  Transmission Date: 20150821
  Serious: No
  Sender: FDA-Public Use
  Company Number: US-MALLINCKRODT-QSC-2014-0797

PATIENT
  Weight: 16.4 kg

DRUGS (3)
  1. H.P. ACTHAR [Suspect]
     Active Substance: CORTICOTROPIN
     Indication: OPSOCLONUS MYOCLONUS
     Dosage: UNK
     Route: 030
     Dates: start: 201402, end: 2014
  2. H.P. ACTHAR [Suspect]
     Active Substance: CORTICOTROPIN
     Dosage: 0.5 ML, QOD
     Route: 030
     Dates: start: 20140728
  3. H.P. ACTHAR [Suspect]
     Active Substance: CORTICOTROPIN
     Dosage: 0.5ML ALTERNATING DAILY WITH 0.05ML
     Route: 030
     Dates: start: 201406, end: 201407

REACTIONS (4)
  - Intentional product use issue [Unknown]
  - Opsoclonus myoclonus [Recovering/Resolving]
  - Condition aggravated [None]
  - Gait disturbance [Recovered/Resolved]

NARRATIVE: CASE EVENT DATE: 2014
